FAERS Safety Report 7016396-0 (Version None)
Quarter: 2010Q3

REPORT INFORMATION
  Report Type: 
  Country: None (occurrence: None)
  Receive Date: 20100927
  Receipt Date: 20100917
  Transmission Date: 20110219
  Serious: Yes (Hospitalization)
  Sender: FDA-Public Use
  Company Number: PHHO2010FR14560

PATIENT
  Sex: Female

DRUGS (4)
  1. AFINITOR [Suspect]
     Indication: ENDOMETRIAL CANCER METASTATIC
     Dosage: 10 MG
     Route: 048
     Dates: start: 20090917, end: 20100212
  2. INULIN [Concomitant]
  3. FRAXODI [Concomitant]
  4. CALCIPARINE [Concomitant]

REACTIONS (4)
  - EMBOLISM ARTERIAL [None]
  - PULMONARY EMBOLISM [None]
  - THROMBOSIS [None]
  - VENA CAVA FILTER INSERTION [None]
